FAERS Safety Report 17859882 (Version 1)
Quarter: 2020Q2

REPORT INFORMATION
  Report Type: Spontaneous
  Country: ES (occurrence: ES)
  Receive Date: 20200604
  Receipt Date: 20200604
  Transmission Date: 20200714
  Serious: Yes (Hospitalization, Other)
  Sender: FDA-Public Use
  Company Number: ES-ACCORD-184137

PATIENT
  Age: 75 Year
  Sex: Male

DRUGS (1)
  1. METHOTREXATE. [Suspect]
     Active Substance: METHOTREXATE
     Indication: KERATOACANTHOMA
     Dosage: 15 AND 25 MG
     Route: 026

REACTIONS (5)
  - Malaise [Recovering/Resolving]
  - Asthenia [Unknown]
  - Pancytopenia [Recovering/Resolving]
  - Off label use [Unknown]
  - Diverticulitis [Recovering/Resolving]
